FAERS Safety Report 25286487 (Version 1)
Quarter: 2025Q2

REPORT INFORMATION
  Report Type: Spontaneous
  Country: FR (occurrence: FR)
  Receive Date: 20250509
  Receipt Date: 20250509
  Transmission Date: 20250716
  Serious: Yes (Death, Other)
  Sender: AUROBINDO
  Company Number: FR-AFSSAPS-TO2025000093

PATIENT
  Age: 68 Year
  Sex: Female
  Weight: 172 kg

DRUGS (2)
  1. LEVETIRACETAM [Suspect]
     Active Substance: LEVETIRACETAM
     Indication: Status epilepticus
     Dosage: 3000 MILLIGRAM, ONCE A DAY (1000-1000-1000)
     Route: 042
     Dates: start: 20250105, end: 20250111
  2. RIVOTRIL [Suspect]
     Active Substance: CLONAZEPAM
     Indication: Status epilepticus
     Dosage: 1 DOSAGE FORM, ONCE A DAY
     Route: 042
     Dates: start: 20250105, end: 20250111

REACTIONS (1)
  - Toxic epidermal necrolysis [Fatal]

NARRATIVE: CASE EVENT DATE: 20250110
